FAERS Safety Report 24331796 (Version 1)
Quarter: 2024Q3

REPORT INFORMATION
  Report Type: Spontaneous
  Country: JP (occurrence: JP)
  Receive Date: 20240918
  Receipt Date: 20240918
  Transmission Date: 20241017
  Serious: Yes (Other)
  Sender: ABBVIE
  Company Number: JP-ABBVIE-5704948

PATIENT
  Age: 77 Year
  Sex: Female

DRUGS (9)
  1. RINVOQ [Suspect]
     Active Substance: UPADACITINIB
     Indication: Colitis ulcerative
     Dosage: FORM STRENGTH:15 MILLIGRAM?FORM STRENGTH: 15 MG?DECREASED DOSE
     Route: 048
     Dates: start: 20240112
  2. RINVOQ [Suspect]
     Active Substance: UPADACITINIB
     Indication: Colitis ulcerative
     Dosage: FORM STRENGTH: 15 MG
     Route: 048
     Dates: start: 20231222
  3. RINVOQ [Suspect]
     Active Substance: UPADACITINIB
     Indication: Colitis ulcerative
     Dosage: 30 MILLIGRAM?END DATE IN JAN 2024?FORM STRENGTH: 15 MG?DECREASED DOSE
     Route: 048
     Dates: start: 20240105
  4. PREDNISOLONE SODIUM SUCCINATE [Concomitant]
     Active Substance: PREDNISOLONE SODIUM SUCCINATE
     Indication: Colitis ulcerative
     Dosage: 60 MG (GRADUALLY DECREASED)
     Dates: start: 20231003, end: 20231223
  5. SULFAMETHOXAZOLE AND TRIMETHOPRIM [Concomitant]
     Active Substance: SULFAMETHOXAZOLE\TRIMETHOPRIM
     Indication: Product used for unknown indication
     Dates: start: 20231003
  6. PREDNISOLONE [Concomitant]
     Active Substance: PREDNISOLONE
     Indication: Colitis ulcerative
     Dosage: DISCONTINUED IN DEC 2023?5 MG
     Route: 048
     Dates: start: 20231205
  7. PREDNISOLONE [Concomitant]
     Active Substance: PREDNISOLONE
     Indication: Colitis ulcerative
     Dosage: DISCONTINUED IN 2023?10 MG
     Route: 048
     Dates: start: 20231129
  8. PREDNISOLONE [Concomitant]
     Active Substance: PREDNISOLONE
     Indication: Colitis ulcerative
     Dosage: DISCONTINUED IN DEC 2023?2.5 MG
     Route: 048
     Dates: start: 20231210
  9. PREDNISOLONE [Concomitant]
     Active Substance: PREDNISOLONE
     Indication: Colitis ulcerative
     Dosage: 1 MG
     Route: 048
     Dates: start: 20231217, end: 20231223

REACTIONS (2)
  - Deep vein thrombosis [Unknown]
  - C-reactive protein increased [Recovered/Resolved]

NARRATIVE: CASE EVENT DATE: 20240306
